FAERS Safety Report 8244763-6 (Version None)
Quarter: 2012Q1

REPORT INFORMATION
  Report Type: 
  Country: None (occurrence: None)
  Receive Date: 20120329
  Receipt Date: 20110325
  Transmission Date: 20120608
  Serious: Yes (Hospitalization)
  Sender: FDA-Public Use
  Company Number: US-MYLANLABS-2011S1006235

PATIENT
  Age: 49 Year
  Sex: Female
  Weight: 61.24 kg

DRUGS (3)
  1. FENTANYL-100 [Suspect]
     Indication: PAIN
     Dosage: CHANGED Q72H.
     Route: 062
     Dates: start: 20110201, end: 20110201
  2. ZANAFLEX [Concomitant]
  3. LORTAB [Concomitant]

REACTIONS (3)
  - RASH GENERALISED [None]
  - CHEST PAIN [None]
  - PRURITUS [None]
